FAERS Safety Report 8575201-1 (Version None)
Quarter: 2012Q3

REPORT INFORMATION
  Report Type: 
  Country: None (occurrence: None)
  Receive Date: 20120807
  Receipt Date: 20120726
  Transmission Date: 20120928
  Serious: Yes (Hospitalization, Other)
  Sender: FDA-Public Use
  Company Number: US-BAYER-201022416NA

PATIENT
  Age: 47 Year
  Sex: Female
  Weight: 62.6 kg

DRUGS (11)
  1. FEXOFENADINE [Concomitant]
     Indication: HYPERSENSITIVITY
     Dosage: DAILY.
  2. MIRCETTE [Concomitant]
     Indication: CONTRACEPTION
  3. MULTI-VITAMIN [Concomitant]
     Dosage: ON AND OFF FOR SEVERAL YEARS, 3 TIMES PER WEEK.
  4. ALLEGRA [Concomitant]
  5. YASMIN [Suspect]
     Indication: PREMENSTRUAL SYNDROME
     Dosage: UNK
     Dates: start: 20030701, end: 20040701
  6. YASMIN [Suspect]
     Indication: MENSTRUAL CYCLE MANAGEMENT
  7. CITALOPRAM HYDROBROMIDE [Concomitant]
     Dosage: DAILY.
  8. SINGULAIR [Concomitant]
  9. SUDAFED 12 HOUR [Concomitant]
     Dosage: UNK
     Dates: start: 20040609
  10. CELEXA [Concomitant]
  11. ZITHROMAX [Concomitant]
     Dosage: UNK
     Dates: start: 20040709

REACTIONS (8)
  - MENSTRUATION IRREGULAR [None]
  - MAY-THURNER SYNDROME [None]
  - DEPRESSION [None]
  - ANXIETY [None]
  - DEEP VEIN THROMBOSIS [None]
  - HOT FLUSH [None]
  - WEIGHT INCREASED [None]
  - MENOPAUSE [None]
